FAERS Safety Report 4967419-1 (Version None)
Quarter: 2006Q2

REPORT INFORMATION
  Report Type: 
  Country: None (occurrence: None)
  Receive Date: 20060410
  Receipt Date: 20060331
  Transmission Date: 20061013
  Serious: Yes (Hospitalization)
  Sender: FDA-Public Use
  Company Number: FR-AMGEN-UK174766

PATIENT
  Age: 59 Year
  Sex: Male
  Weight: 120 kg

DRUGS (9)
  1. NEULASTA [Suspect]
     Indication: DRUG USE FOR UNKNOWN INDICATION
     Dates: end: 20060218
  2. CORTANCYL [Concomitant]
     Route: 048
  3. ARANESP [Concomitant]
     Dates: end: 20060218
  4. OLMESARTAN MEDOXOMIL [Concomitant]
     Route: 048
  5. LOXEN [Concomitant]
     Route: 048
  6. CYCLOPHOSPHAMIDE [Concomitant]
  7. DOXORUBICIN HCL [Concomitant]
  8. ONCOVIN [Concomitant]
  9. PREDNISONE [Concomitant]

REACTIONS (4)
  - ACUTE CORONARY SYNDROME [None]
  - ANAEMIA [None]
  - CHEST PAIN [None]
  - PAIN IN EXTREMITY [None]
